FAERS Safety Report 21634450 (Version 2)
Quarter: 2023Q2

REPORT INFORMATION
  Report Type: Report from Study
  Country: US (occurrence: US)
  Receive Date: 20221123
  Receipt Date: 20230414
  Transmission Date: 20230722
  Serious: No
  Sender: FDA-Public Use
  Company Number: US-ABBVIE-22K-163-4341200-00

PATIENT
  Sex: Female

DRUGS (5)
  1. IMBRUVICA [Suspect]
     Active Substance: IBRUTINIB
     Indication: Waldenstrom^s macroglobulinaemia
     Dosage: TIME INTERVAL: 0.33333333 DAYS
     Route: 048
  2. IMBRUVICA [Suspect]
     Active Substance: IBRUTINIB
     Indication: Waldenstrom^s macroglobulinaemia
     Route: 048
     Dates: start: 20210521
  3. MODERNA COVID-19 VACCINE [Concomitant]
     Active Substance: ELASOMERAN
     Indication: COVID-19 immunisation
     Dosage: 1ST DOSE?ONE IN ONCE FREQUENCY
     Route: 030
     Dates: start: 20210226, end: 20210226
  4. MODERNA COVID-19 VACCINE [Concomitant]
     Active Substance: ELASOMERAN
     Indication: COVID-19 immunisation
     Dosage: 2ND DOSE?ONE IN ONCE FREQUENCY
     Route: 030
     Dates: start: 20210326, end: 20210326
  5. MODERNA COVID-19 VACCINE [Concomitant]
     Active Substance: ELASOMERAN
     Indication: COVID-19 immunisation
     Dosage: BOOSTER DOSE?ONE IN ONCE FREQUENCY
     Route: 030
     Dates: start: 20210824, end: 20210824

REACTIONS (14)
  - Lung disorder [Unknown]
  - Blood blister [Unknown]
  - Blood immunoglobulin G decreased [Unknown]
  - Skin disorder [Unknown]
  - Blood immunoglobulin A decreased [Unknown]
  - Alopecia [Not Recovered/Not Resolved]
  - Impaired healing [Not Recovered/Not Resolved]
  - Wound [Unknown]
  - Skin laceration [Unknown]
  - Contusion [Not Recovered/Not Resolved]
  - Epistaxis [Unknown]
  - Onychoclasis [Not Recovered/Not Resolved]
  - Fatigue [Unknown]
  - Hair texture abnormal [Unknown]

NARRATIVE: CASE EVENT DATE: 20220101
